FAERS Safety Report 6570604-9 (Version None)
Quarter: 2010Q1

REPORT INFORMATION
  Report Type: 
  Country: None (occurrence: None)
  Receive Date: 20100204
  Receipt Date: 20100202
  Transmission Date: 20100710
  Serious: Yes (Hospitalization, Other)
  Sender: FDA-Public Use
  Company Number: TW-ROXANE LABORATORIES, INC.-2010-RO-00118RO

PATIENT
  Age: 61 Year
  Sex: Male

DRUGS (3)
  1. CALCIUM GLUCONATE [Suspect]
     Indication: HYPOCALCAEMIA
     Route: 042
  2. HEPARIN [Concomitant]
     Indication: ANTICOAGULANT THERAPY
  3. WARFARIN SODIUM [Concomitant]
     Indication: ANTICOAGULANT THERAPY
     Dosage: 2.5 MG
     Route: 048

REACTIONS (2)
  - BLOOD HOMOCYSTEINE INCREASED [None]
  - DEEP VEIN THROMBOSIS [None]
